FAERS Safety Report 16660997 (Version 1)
Quarter: 2019Q3

REPORT INFORMATION
  Report Type: Spontaneous
  Country: US (occurrence: US)
  Receive Date: 20190802
  Receipt Date: 20190802
  Transmission Date: 20191004
  Serious: No
  Sender: FDA-Public Use
  Company Number: US-PFIZER INC-2019327283

PATIENT
  Age: 77 Year
  Sex: Female
  Weight: 83.91 kg

DRUGS (4)
  1. SYNTHROID [Concomitant]
     Active Substance: LEVOTHYROXINE SODIUM
     Dosage: UNK (MONDAY TO FRIDAY I TAKE 112 MICRO GRAMS OF SYNTHROID. ON SATURDAY AND SUNDAY, I TAKE 125 MICRO)
  2. VERAPAMIL HCL [Suspect]
     Active Substance: VERAPAMIL HYDROCHLORIDE
     Indication: TACHYCARDIA
     Dosage: UNK, 1X/DAY (I AM TAKING 180 IN THE EVENING AT BED TIME)
     Route: 048
  3. VERAPAMIL HCL [Suspect]
     Active Substance: VERAPAMIL HYDROCHLORIDE
     Dosage: UNK, 2X/DAY (I AM TAKING 120 ONCE IN THE EVENING AND I AM TAKING 180 ONCE IN THE EVENING)
     Route: 048
  4. VERAPAMIL HCL [Suspect]
     Active Substance: VERAPAMIL HYDROCHLORIDE
     Indication: HEART DISEASE CONGENITAL
     Dosage: UNK, 2X/DAY (120 AND I TAKE IT IN THE MORNING. ONE TABLET IN THE MORNING AND IN NIGHT TIME)
     Route: 048

REACTIONS (1)
  - Drug ineffective [Unknown]
